FAERS Safety Report 9879398 (Version 1)
Quarter: 2014Q1

REPORT INFORMATION
  Report Type: Spontaneous
  Country: US (occurrence: US)
  Receive Date: 20140206
  Receipt Date: 20140206
  Transmission Date: 20141002
  Serious: No
  Sender: FDA-Public Use
  Company Number: US-BAYER-2014-018643

PATIENT
  Age: 74 Year
  Sex: Male
  Weight: 81.65 kg

DRUGS (5)
  1. XARELTO [Suspect]
     Indication: CEREBROVASCULAR ACCIDENT PROPHYLAXIS
     Dosage: 15 MG, QD
     Route: 048
     Dates: start: 201401
  2. XARELTO [Suspect]
     Indication: ATRIAL FIBRILLATION
  3. ALEVE TABLET [Suspect]
     Indication: PAIN
     Dosage: UNK
     Route: 065
     Dates: start: 20140123
  4. VALIUM [Suspect]
     Indication: MUSCLE SPASMS
     Dosage: UNK
     Route: 065
     Dates: start: 20140126
  5. RYTHMOL [Concomitant]
     Indication: ATRIAL FIBRILLATION
     Route: 048

REACTIONS (1)
  - Muscle spasms [Not Recovered/Not Resolved]
